FAERS Safety Report 19194249 (Version 1)
Quarter: 2021Q2

REPORT INFORMATION
  Report Type: Spontaneous
  Country: US (occurrence: US)
  Receive Date: 20210429
  Receipt Date: 20210429
  Transmission Date: 20210717
  Serious: Yes (Hospitalization)
  Sender: FDA-Public Use
  Company Number: US-STRIDES ARCOLAB LIMITED-2021SP004742

PATIENT
  Age: 36 Year
  Sex: Male

DRUGS (1)
  1. POTASSIUM CITRATE. [Suspect]
     Active Substance: POTASSIUM CITRATE
     Indication: PRODUCT USED FOR UNKNOWN INDICATION
     Dosage: INJECTION OF AQUEOUS SOLUTION
     Route: 032

REACTIONS (5)
  - Ventricular arrhythmia [Unknown]
  - Pericardial effusion [Unknown]
  - Suicide attempt [Unknown]
  - Heart injury [Unknown]
  - Electrocardiogram ST segment elevation [Recovered/Resolved]
